FAERS Safety Report 4836618-1 (Version None)
Quarter: 2005Q4

REPORT INFORMATION
  Report Type: 
  Country: None (occurrence: None)
  Receive Date: 20051121
  Receipt Date: 20051107
  Transmission Date: 20060501
  Serious: Yes (Hospitalization)
  Sender: FDA-Public Use
  Company Number: 2005108260

PATIENT
  Age: 11 Year
  Sex: Female
  Weight: 24 kg

DRUGS (1)
  1. GENOTROPIN [Suspect]
     Indication: HYPOPITUITARISM
     Dosage: 0.7 MG (UNK, DAILY), SUBCUTANEOUS
     Route: 058
     Dates: start: 20040201, end: 20050701

REACTIONS (2)
  - EXTRA-OSSEOUS EWING'S SARCOMA [None]
  - PRIMITIVE NEUROECTODERMAL TUMOUR [None]
